FAERS Safety Report 25037996 (Version 1)
Quarter: 2025Q1

REPORT INFORMATION
  Report Type: Spontaneous
  Country: US (occurrence: US)
  Receive Date: 20250304
  Receipt Date: 20250304
  Transmission Date: 20250409
  Serious: No
  Sender: BIOGEN
  Company Number: US-BIOGEN-2023BI01234484

PATIENT
  Sex: Female

DRUGS (11)
  1. VUMERITY [Suspect]
     Active Substance: DIROXIMEL FUMARATE
     Indication: Multiple sclerosis
     Dosage: TAKE 2 CAPSULES (462MG) BY MOUTH TWICE DAILY.
     Route: 050
  2. ATORVASTATIN CALCIUM [Concomitant]
     Active Substance: ATORVASTATIN CALCIUM
     Route: 050
  3. OXYBUTYNIN CHLORIDE [Concomitant]
     Active Substance: OXYBUTYNIN CHLORIDE
     Route: 050
  4. VITAMIN C [Concomitant]
     Active Substance: ASCORBIC ACID
     Route: 050
  5. VITALINE CoQ10/Vitamin E [Concomitant]
     Route: 050
  6. D3-5 [Concomitant]
     Route: 050
  7. ZINC GLUCONATE [Concomitant]
     Active Substance: ZINC GLUCONATE
     Route: 050
  8. IRON [Concomitant]
     Active Substance: IRON
     Route: 050
  9. AMLODIPINE BESYLATE/BENAZ [Concomitant]
     Route: 050
  10. OZEMPIC [Concomitant]
     Active Substance: SEMAGLUTIDE
     Route: 050
  11. VITAMIN B12 [Concomitant]
     Active Substance: CYANOCOBALAMIN
     Route: 050

REACTIONS (5)
  - Liver disorder [Unknown]
  - Cough [Unknown]
  - Gastrooesophageal reflux disease [Unknown]
  - Abdominal pain [Unknown]
  - Vomiting [Unknown]
